FAERS Safety Report 16383805 (Version 1)
Quarter: 2019Q2

REPORT INFORMATION
  Report Type: Report from Study
  Country: ES (occurrence: ES)
  Receive Date: 20190603
  Receipt Date: 20190603
  Transmission Date: 20190711
  Serious: Yes (Hospitalization)
  Sender: FDA-Public Use
  Company Number: ES-MYLANLABS-2019M1050972

PATIENT
  Age: 87 Year
  Sex: Female

DRUGS (10)
  1. FENTANYL. [Suspect]
     Active Substance: FENTANYL
     Indication: PRODUCT USED FOR UNKNOWN INDICATION
     Dosage: 0.5/72 DESDE HACE 2 SEMANAS. ^SU MAP DISMINUYE A UN CUARTO HACE DOS D?AS, PERO SIN MEJOR?A
     Route: 062
     Dates: start: 201712, end: 20180113
  2. DOLOCATIL [Concomitant]
     Active Substance: ACETAMINOPHEN
     Dosage: SP
     Route: 048
  3. DEANXIT [Interacting]
     Active Substance: FLUPENTIXOL DIHYDROCHLORIDE\MELITRACEN HYDROCHLORIDE
     Indication: MIXED ANXIETY AND DEPRESSIVE DISORDER
     Dosage: 0-1-0
     Route: 048
     Dates: start: 2007, end: 20180119
  4. DUPHALAC [Concomitant]
     Active Substance: LACTULOSE
     Dosage: 1-0-0
     Route: 048
  5. ENALAPRIL [Concomitant]
     Active Substance: ENALAPRIL
     Dosage: 1/24H
     Route: 048
  6. MASDIL [Concomitant]
     Active Substance: DILTIAZEM HYDROCHLORIDE
     Dosage: 1/24H
     Route: 048
  7. SEROXAT [Interacting]
     Active Substance: PAROXETINE HYDROCHLORIDE
     Indication: MIXED ANXIETY AND DEPRESSIVE DISORDER
     Dosage: 0.5-0-0
     Route: 048
     Dates: start: 2002
  8. ZOCOR [Concomitant]
     Active Substance: SIMVASTATIN
     Dosage: 0-0-1
     Route: 048
  9. ACECLOFENACO [Concomitant]
     Active Substance: ACECLOFENAC
     Dosage: SP
     Route: 048
  10. ORFIDAL [Interacting]
     Active Substance: LORAZEPAM
     Indication: MIXED ANXIETY AND DEPRESSIVE DISORDER
     Dosage: 0-0-1
     Route: 048
     Dates: start: 2003

REACTIONS (3)
  - Stupor [Recovered/Resolved]
  - Confusional state [Recovered/Resolved]
  - Drug interaction [Unknown]

NARRATIVE: CASE EVENT DATE: 201712
